FAERS Safety Report 23644301 (Version 5)
Quarter: 2024Q2

REPORT INFORMATION
  Report Type: Spontaneous
  Country: US (occurrence: US)
  Receive Date: 20240318
  Receipt Date: 20240529
  Transmission Date: 20240716
  Serious: Yes (Other)
  Sender: FDA-Public Use
  Company Number: US-GLAXOSMITHKLINE-US2024AMR032615

PATIENT

DRUGS (4)
  1. WELLBUTRIN [Suspect]
     Active Substance: BUPROPION HYDROCHLORIDE
     Indication: Bipolar disorder
     Dosage: 150 MG
     Route: 048
     Dates: end: 20240109
  2. INGREZZA [Suspect]
     Active Substance: VALBENAZINE
     Indication: Tardive dyskinesia
     Dosage: 40 MG, QD
     Route: 048
     Dates: start: 20191028
  3. INGREZZA [Suspect]
     Active Substance: VALBENAZINE
     Dosage: 80 MG, QD
     Dates: start: 20210713
  4. CAPLYTA [Suspect]
     Active Substance: LUMATEPERONE
     Indication: Bipolar disorder
     Dosage: UNK
     Dates: start: 202301, end: 20240109

REACTIONS (2)
  - Seizure [Unknown]
  - Loss of consciousness [Recovered/Resolved]
